FAERS Safety Report 16077172 (Version 1)
Quarter: 2019Q2

REPORT INFORMATION
  Report Type: Spontaneous
  Country: US (occurrence: US)
  Receive Date: 20190314
  Receipt Date: 20190314
  Transmission Date: 20190711
  Serious: Yes (Other)
  Sender: FDA-Public Use
  Company Number: None

PATIENT
  Age: 46 Year
  Sex: Female
  Weight: 59.9 kg

DRUGS (6)
  1. FLUOXETINE 20 MG PO DAILY [Concomitant]
  2. OXYCONTIN 10 MG PO BID [Concomitant]
  3. GABAPENTIN 300 MG PO TID [Concomitant]
  4. LIDOCAINE 5% TRANSDERMAL PATCH - 1 PATCH DAILY [Concomitant]
  5. SORAFENIB [Suspect]
     Active Substance: SORAFENIB
     Indication: FIBROMATOSIS
     Route: 048
     Dates: start: 20190207, end: 20190309
  6. OXYCODONE-APAP 5-325 MG (1 TABLET PO Q4-6H PRN PAIN) [Concomitant]

REACTIONS (3)
  - Abdominal pain [None]
  - Perforated ulcer [None]
  - Peritonitis [None]

NARRATIVE: CASE EVENT DATE: 20190309
